FAERS Safety Report 6066811-4 (Version None)
Quarter: 2009Q1

REPORT INFORMATION
  Report Type: 
  Country: None (occurrence: None)
  Receive Date: 20090203
  Receipt Date: 20090123
  Transmission Date: 20090719
  Serious: Yes (Other)
  Sender: FDA-Public Use
  Company Number: 230886K09USA

PATIENT
  Age: 47 Year
  Sex: Female

DRUGS (7)
  1. REBIF [Suspect]
     Indication: MULTIPLE SCLEROSIS
     Dosage: 44 MCG, 3 IN 1 WEEKS, SUBCUTANEOUS
     Route: 058
     Dates: start: 20020123
  2. SYNTHROID [Concomitant]
  3. ADVIL LIQUI-GELS [Concomitant]
  4. ACTONEL [Concomitant]
  5. WELLBUTRIN [Concomitant]
  6. YAZ [Concomitant]
  7. DETROL (TOLETERODINE) [Concomitant]

REACTIONS (1)
  - SYSTEMIC LUPUS ERYTHEMATOSUS [None]
